FAERS Safety Report 5024267-4 (Version None)
Quarter: 2006Q2

REPORT INFORMATION
  Report Type: 
  Country: None (occurrence: None)
  Receive Date: 20060607
  Receipt Date: 20060524
  Transmission Date: 20061013
  Serious: Yes (Hospitalization)
  Sender: FDA-Public Use
  Company Number: 2006RR-02402

PATIENT
  Age: 75 Year

DRUGS (6)
  1. FLUOXETINE [Suspect]
     Dosage: 40 MG, QD, ORAL
     Route: 048
     Dates: start: 20060404, end: 20060502
  2. ASPIRIN [Concomitant]
  3. QUININE SULFATE [Concomitant]
  4. RAMIPRIL [Concomitant]
  5. SIMVASTATIN 9SIMVASTATIN) [Concomitant]
  6. MIRTAZAPINE [Concomitant]

REACTIONS (3)
  - DEPRESSION [None]
  - HYPONATRAEMIA [None]
  - SUICIDAL IDEATION [None]
